FAERS Safety Report 10203305 (Version 1)
Quarter: 2014Q2

REPORT INFORMATION
  Report Type: Spontaneous
  Country: FR (occurrence: FR)
  Receive Date: 20140529
  Receipt Date: 20140529
  Transmission Date: 20141212
  Serious: Yes (Hospitalization)
  Sender: FDA-Public Use
  Company Number: FR-ROCHE-1404000

PATIENT
  Age: 76 Year
  Sex: Male

DRUGS (9)
  1. VALIUM [Suspect]
     Indication: SCHIZOPHRENIA, PARANOID TYPE
     Route: 048
     Dates: start: 20140425
  2. FLUANXOL [Suspect]
     Indication: SCHIZOPHRENIA, PARANOID TYPE
     Route: 065
  3. FLUANXOL [Suspect]
     Route: 065
     Dates: start: 201405
  4. FLUANXOL [Suspect]
     Route: 065
  5. FLUANXOL [Suspect]
     Route: 048
     Dates: end: 20140509
  6. LOXAPAC [Suspect]
     Indication: SCHIZOPHRENIA, PARANOID TYPE
     Route: 048
     Dates: start: 20140425
  7. LEPTICUR [Concomitant]
  8. EFFEXOR [Concomitant]
     Dosage: EFFEXOR 75
     Route: 065
  9. STILNOX [Concomitant]

REACTIONS (2)
  - Leukopenia [Not Recovered/Not Resolved]
  - Neutropenia [Recovered/Resolved]
